FAERS Safety Report 19398747 (Version 1)
Quarter: 2021Q2

REPORT INFORMATION
  Report Type: Spontaneous
  Country: US (occurrence: US)
  Receive Date: 20210610
  Receipt Date: 20210610
  Transmission Date: 20210717
  Serious: Yes (Death, Hospitalization)
  Sender: FDA-Public Use
  Company Number: US-HIKMA PHARMACEUTICALS USA INC.-US-H14001-21-02718

PATIENT
  Age: 70 Year
  Sex: Female

DRUGS (4)
  1. HALOPERIDOL. [Suspect]
     Active Substance: HALOPERIDOL
     Indication: SCHIZOAFFECTIVE DISORDER
     Dosage: UNKNOWN
     Route: 065
  2. LISINOPRIL. [Suspect]
     Active Substance: LISINOPRIL
     Indication: HYPERTENSION
     Dosage: UNKNOWN
     Route: 065
  3. LITHIUM. [Suspect]
     Active Substance: LITHIUM
     Indication: SCHIZOAFFECTIVE DISORDER
     Dosage: UNKNOWN
     Route: 065
  4. QUETIAPINE. [Suspect]
     Active Substance: QUETIAPINE
     Indication: SCHIZOAFFECTIVE DISORDER
     Dosage: UNKNOWN
     Route: 065

REACTIONS (15)
  - Speech disorder [Unknown]
  - Bradycardia [Unknown]
  - Condition aggravated [Unknown]
  - Unresponsive to stimuli [Unknown]
  - Confusional state [Unknown]
  - Lethargy [Unknown]
  - Neglect of personal appearance [Unknown]
  - Encephalopathy [Unknown]
  - Ataxia [Unknown]
  - Gait disturbance [Unknown]
  - Toxicity to various agents [Fatal]
  - Tremor [Unknown]
  - Hypotension [Unknown]
  - Clonus [Unknown]
  - Nystagmus [Unknown]
